FAERS Safety Report 17394460 (Version 1)
Quarter: 2020Q1

REPORT INFORMATION
  Report Type: Spontaneous
  Country: SE (occurrence: SE)
  Receive Date: 20200210
  Receipt Date: 20200210
  Transmission Date: 20200409
  Serious: Yes (Other)
  Sender: FDA-Public Use
  Company Number: SE-ROCHE-2545108

PATIENT
  Age: 37 Year
  Sex: Male

DRUGS (1)
  1. SOMATROPIN. [Suspect]
     Active Substance: SOMATROPIN
     Indication: BODY HEIGHT BELOW NORMAL
     Route: 065
     Dates: start: 1996, end: 2006

REACTIONS (7)
  - Arthralgia [Unknown]
  - Pituitary tumour [Unknown]
  - Product use in unapproved indication [Unknown]
  - Weight decreased [Unknown]
  - Weight increased [Unknown]
  - Off label use [Unknown]
  - Hormone level abnormal [Unknown]
